FAERS Safety Report 10881804 (Version 1)
Quarter: 2015Q1

REPORT INFORMATION
  Report Type: Spontaneous
  Country: US (occurrence: None)
  Receive Date: 20150227
  Receipt Date: 20150227
  Transmission Date: 20150721
  Serious: No
  Sender: FDA-Public Use
  Company Number: None

PATIENT
  Age: 66 Year
  Sex: Female
  Weight: 72.58 kg

DRUGS (3)
  1. AMLODIPINE BESYLATE. [Concomitant]
     Active Substance: AMLODIPINE BESYLATE
  2. NATURE-THROID [Concomitant]
     Active Substance: THYROID, PORCINE
  3. SIMVASTATIN. [Suspect]
     Active Substance: SIMVASTATIN
     Dosage: 1 TABLET BY MOUTH EVERY DAY AT BEDTIME - NO GRAPEFRUIT
     Route: 048
     Dates: start: 20141119, end: 20141217

REACTIONS (5)
  - Abdominal pain [None]
  - Poor quality sleep [None]
  - Insomnia [None]
  - Pain in extremity [None]
  - Product formulation issue [None]
